FAERS Safety Report 16638800 (Version 2)
Quarter: 2019Q3

REPORT INFORMATION
  Report Type: Spontaneous
  Country: GB (occurrence: GB)
  Receive Date: 20190726
  Receipt Date: 20190802
  Transmission Date: 20191004
  Serious: Yes (Life-Threatening, Hospitalization, Disabling, Other)
  Sender: FDA-Public Use
  Company Number: GB-SA-2019SA138800

PATIENT
  Age: 27 Year
  Sex: Female

DRUGS (2)
  1. IMIQUIMOD. [Suspect]
     Active Substance: IMIQUIMOD
     Indication: ANOGENITAL WARTS
     Dosage: UNK,UNK
     Route: 065
  2. LEMTRADA [Suspect]
     Active Substance: ALEMTUZUMAB
     Indication: RELAPSING-REMITTING MULTIPLE SCLEROSIS
     Dosage: UNK UNK, QD
     Route: 041
     Dates: start: 20170116, end: 20170120

REACTIONS (14)
  - Encephalopathy [Unknown]
  - Cognitive disorder [Unknown]
  - T-lymphocyte count decreased [Not Recovered/Not Resolved]
  - CSF protein abnormal [Unknown]
  - Anogenital warts [Unknown]
  - Neurological decompensation [Unknown]
  - Leukoencephalopathy [Unknown]
  - B-lymphocyte count increased [Unknown]
  - Multiple sclerosis [Unknown]
  - Motor dysfunction [Recovering/Resolving]
  - Bedridden [Recovering/Resolving]
  - Toxoplasmosis [Unknown]
  - Autoimmune disorder [Unknown]
  - Multiple sclerosis relapse [Unknown]

NARRATIVE: CASE EVENT DATE: 201709
